FAERS Safety Report 13191560 (Version 1)
Quarter: 2017Q1

REPORT INFORMATION
  Report Type: Spontaneous
  Country: FR (occurrence: FR)
  Receive Date: 20170207
  Receipt Date: 20170207
  Transmission Date: 20170428
  Serious: Yes (Other)
  Sender: FDA-Public Use
  Company Number: FR-AUROBINDO-AUR-APL-2017-29242

PATIENT
  Age: 46 Year
  Sex: Female
  Weight: 74 kg

DRUGS (5)
  1. PARACETAMOL ARROW [Suspect]
     Active Substance: ACETAMINOPHEN
     Indication: SINUSITIS
     Dosage: 500 MG, UNK
     Route: 048
  2. IBUPROFEN ARROW FILM-COATED TABLET 400 MG [Suspect]
     Active Substance: IBUPROFEN
     Indication: OROPHARYNGEAL PAIN
     Dosage: 400 MG, ONCE TO TWICE DAILY
     Route: 048
     Dates: start: 20170109, end: 20170112
  3. PARACETAMOL ARROW [Suspect]
     Active Substance: ACETAMINOPHEN
     Indication: OROPHARYNGEAL PAIN
  4. LEVOTHYROX [Concomitant]
     Active Substance: LEVOTHYROXINE
     Indication: PRODUCT USED FOR UNKNOWN INDICATION
     Route: 065
  5. IBUPROFEN ARROW FILM-COATED TABLET 400 MG [Suspect]
     Active Substance: IBUPROFEN
     Indication: SINUSITIS

REACTIONS (11)
  - Syncope [Recovered/Resolved]
  - Dizziness [Recovering/Resolving]
  - Product substitution issue [Unknown]
  - Abdominal pain upper [Recovering/Resolving]
  - Malaise [Recovering/Resolving]
  - Haematoma [Recovering/Resolving]
  - Tinnitus [Recovering/Resolving]
  - Wound [Recovering/Resolving]
  - Head injury [Recovering/Resolving]
  - Fall [Recovering/Resolving]
  - Paraesthesia [Recovering/Resolving]

NARRATIVE: CASE EVENT DATE: 20170109
